FAERS Safety Report 25660239 (Version 3)
Quarter: 2025Q3

REPORT INFORMATION
  Report Type: Spontaneous
  Country: US (occurrence: US)
  Receive Date: 20250808
  Receipt Date: 20250918
  Transmission Date: 20251021
  Serious: No
  Sender: LUPIN
  Company Number: US-LUPIN PHARMACEUTICALS INC.-2025-06861

PATIENT
  Age: 77 Year
  Weight: 68.027 kg

DRUGS (1)
  1. DESOXIMETASONE [Suspect]
     Active Substance: DESOXIMETASONE
     Indication: Dry skin

REACTIONS (3)
  - Product container issue [Unknown]
  - Expired product administered [Unknown]
  - No adverse event [Unknown]
